FAERS Safety Report 14917100 (Version 5)
Quarter: 2018Q4

REPORT INFORMATION
  Report Type: Spontaneous
  Country: US (occurrence: US)
  Receive Date: 20180520
  Receipt Date: 20181223
  Transmission Date: 20190204
  Serious: Yes (Hospitalization, Other)
  Sender: FDA-Public Use
  Company Number: US-BRISTOL-MYERS SQUIBB COMPANY-BMS-2018-042630

PATIENT
  Age: 87 Year
  Sex: Female
  Weight: 48.98 kg

DRUGS (1)
  1. ORENCIA [Suspect]
     Active Substance: ABATACEPT
     Indication: RHEUMATOID ARTHRITIS
     Dosage: 125 MG, QWK
     Route: 058
     Dates: start: 201804

REACTIONS (8)
  - Rheumatoid arthritis [Unknown]
  - Asthenia [Unknown]
  - Back disorder [Unknown]
  - Device malfunction [Unknown]
  - Gastric haemorrhage [Unknown]
  - Gait disturbance [Unknown]
  - Hospitalisation [Unknown]
  - Musculoskeletal discomfort [Unknown]

NARRATIVE: CASE EVENT DATE: 201809
